FAERS Safety Report 9739530 (Version 2)
Quarter: 2013Q4

REPORT INFORMATION
  Report Type: Report from Study
  Country: US (occurrence: US)
  Receive Date: 20131209
  Receipt Date: 20131209
  Transmission Date: 20140711
  Serious: Yes (Hospitalization, Other)
  Sender: FDA-Public Use
  Company Number: US-ABBVIE-13P-163-1173301-00

PATIENT
  Sex: Female

DRUGS (8)
  1. HUMIRA [Suspect]
     Indication: CROHN^S DISEASE
  2. HUMIRA [Suspect]
     Dates: start: 201012, end: 201212
  3. MULTIVITAMIN [Concomitant]
     Indication: PRODUCT USED FOR UNKNOWN INDICATION
  4. TOPROL [Concomitant]
     Indication: HYPERTENSION
  5. LAMOTRIGINE [Concomitant]
     Indication: NERVOUS SYSTEM DISORDER
     Dosage: 25MG
  6. CYMBALTA [Concomitant]
     Indication: PAIN
  7. XANAX [Concomitant]
     Indication: ANXIETY
  8. DIPRENIATROPE [Concomitant]
     Indication: DIARRHOEA
     Dosage: AS NEEDED

REACTIONS (6)
  - Mitral valve prolapse [Unknown]
  - Heart rate increased [Recovering/Resolving]
  - Dehydration [Unknown]
  - Anxiety [Unknown]
  - Crohn^s disease [Unknown]
  - Diarrhoea [Unknown]
